FAERS Safety Report 12154078 (Version 1)
Quarter: 2016Q1

REPORT INFORMATION
  Report Type: Spontaneous
  Country: US (occurrence: US)
  Receive Date: 20160307
  Receipt Date: 20160307
  Transmission Date: 20160526
  Serious: Yes (Death, Hospitalization)
  Sender: FDA-Public Use
  Company Number: US-DRREDDYS-USA/USA/16/0077424

PATIENT
  Age: 67 Year
  Sex: Male

DRUGS (3)
  1. DOXORUBICIN [Suspect]
     Active Substance: DOXORUBICIN
     Indication: MYCOSIS FUNGOIDES STAGE III
     Route: 065
  2. GEMCITABINE [Suspect]
     Active Substance: GEMCITABINE\GEMCITABINE HYDROCHLORIDE
     Indication: MYCOSIS FUNGOIDES STAGE III
     Route: 065
  3. VINORELBINE [Suspect]
     Active Substance: VINORELBINE\VINORELBINE TARTRATE
     Indication: MYCOSIS FUNGOIDES STAGE III
     Route: 065

REACTIONS (6)
  - Febrile neutropenia [Unknown]
  - Delirium [Unknown]
  - Pyrexia [Unknown]
  - Sepsis [Unknown]
  - Osteonecrosis of jaw [Unknown]
  - Respiratory failure [Unknown]
